FAERS Safety Report 7364428-2 (Version None)
Quarter: 2011Q1

REPORT INFORMATION
  Report Type: 
  Country: None (occurrence: None)
  Receive Date: 20110321
  Receipt Date: 20110318
  Transmission Date: 20110831
  Serious: Yes (Other)
  Sender: FDA-Public Use
  Company Number: GR-PFIZER INC-2011060857

PATIENT
  Sex: Female

DRUGS (1)
  1. XALATAN [Suspect]
     Dosage: UNK
     Route: 061
     Dates: start: 20101201

REACTIONS (2)
  - DRUG INEFFECTIVE [None]
  - INTRAOCULAR PRESSURE INCREASED [None]
